FAERS Safety Report 6893141-0 (Version None)
Quarter: 2010Q3

REPORT INFORMATION
  Report Type: 
  Country: None (occurrence: None)
  Receive Date: 20100731
  Receipt Date: 20090603
  Transmission Date: 20110219
  Serious: No
  Sender: FDA-Public Use
  Company Number: US-PFIZER INC-2009223861

PATIENT
  Sex: Female
  Weight: 60 kg

DRUGS (5)
  1. FLAGYL [Suspect]
     Indication: CLOSTRIDIAL INFECTION
     Dosage: 500 MG, 3X/DAY
     Route: 048
     Dates: start: 20090331, end: 20090421
  2. SELEGILINE [Concomitant]
     Dosage: UNK
  3. LAMOTRIGINE [Concomitant]
     Dosage: UNK
  4. NORVASC [Concomitant]
     Dosage: UNK
  5. THOMAPYRIN N [Concomitant]
     Dosage: UNK

REACTIONS (3)
  - HYPOAESTHESIA [None]
  - MIDDLE INSOMNIA [None]
  - NAUSEA [None]
